FAERS Safety Report 4549997-X (Version None)
Quarter: 2005Q1

REPORT INFORMATION
  Report Type: 
  Country: None (occurrence: None)
  Receive Date: 20050110
  Receipt Date: 20050105
  Transmission Date: 20050727
  Serious: Yes (Hospitalization)
  Sender: FDA-Public Use
  Company Number: US-2004-036114

PATIENT
  Age: 75 Year
  Sex: Male
  Weight: 72.6 kg

DRUGS (1)
  1. BETASERON [Suspect]
     Indication: MULTIPLE SCLEROSIS
     Dosage: 8 MIU, EVERY 2D, SUBCUTANEOUS
     Route: 058
     Dates: start: 20040713, end: 20041020

REACTIONS (4)
  - BLOOD URINE PRESENT [None]
  - INFECTION [None]
  - PROGRESSIVE MULTIPLE SCLEROSIS [None]
  - TREMOR [None]
